FAERS Safety Report 9106856 (Version 1)
Quarter: 2013Q1

REPORT INFORMATION
  Report Type: Spontaneous
  Country: IT (occurrence: IT)
  Receive Date: 20130221
  Receipt Date: 20130221
  Transmission Date: 20140127
  Serious: Yes (Death)
  Sender: FDA-Public Use
  Company Number: IT-OTSUKA-US-2013-10286

PATIENT
  Sex: Female

DRUGS (12)
  1. BUSULFEX [Suspect]
     Indication: ALLOGENIC BONE MARROW TRANSPLANTATION THERAPY
     Dosage: 3.2 MG/KG, UNK
     Route: 042
     Dates: start: 20101004, end: 20101006
  2. THIOTEPA [Suspect]
     Indication: ALLOGENIC BONE MARROW TRANSPLANTATION THERAPY
     Dosage: 5 MG/KG, UNK
     Route: 065
     Dates: start: 20101002, end: 20101004
  3. FLUDARA [Suspect]
     Indication: ALLOGENIC BONE MARROW TRANSPLANTATION THERAPY
     Dosage: 50 MG/M2, UNK
     Route: 065
     Dates: start: 20101004, end: 20101006
  4. CYCLOPHOSPHAMIDE [Concomitant]
     Dosage: 50 MG/KG, UNK
     Dates: start: 20101011, end: 20101013
  5. CYCLOSPORINE [Concomitant]
     Dosage: 1 MG/KG GIVEN AS A CONTINUOUS I.V. INFUSION FROM DAY 0 TO DAY +20, ADJUSTING FOR BLOOD LEVELS (200-4
     Dates: start: 20101008
  6. MYCOPHENOLATE MOFETIL [Concomitant]
     Dosage: 15 MG/KG, Q12HR
     Dates: start: 20101009
  7. G-CSF [Concomitant]
     Dosage: 6 MG MILLIGRAM(S), UNK
     Dates: start: 20101012
  8. MESNA [Concomitant]
     Dosage: UNK
     Dates: start: 20101011, end: 20101015
  9. PHENYTOIN [Concomitant]
     Dosage: 300 MG MILLIGRAM(S), UNK
     Dates: start: 20101004, end: 20101006
  10. ACYCLOVIR [Concomitant]
  11. LEVOFLOXACIN [Concomitant]
  12. FLUCONAZOLE [Concomitant]

REACTIONS (2)
  - Cerebral haemorrhage [Fatal]
  - Infection [Fatal]
